FAERS Safety Report 5155300-7 (Version None)
Quarter: 2006Q4

REPORT INFORMATION
  Report Type: 
  Country: None (occurrence: None)
  Receive Date: 20061121
  Receipt Date: 20061011
  Transmission Date: 20070319
  Serious: Yes (Hospitalization)
  Sender: FDA-Public Use
  Company Number: PHBS2006JP16010

PATIENT
  Age: 38 Year
  Sex: Male
  Weight: 73 kg

DRUGS (10)
  1. CELLCEPT [Concomitant]
     Indication: RENAL TRANSPLANT
     Route: 048
     Dates: start: 20050727, end: 20051224
  2. SALOBEL [Suspect]
     Indication: BLOOD URIC ACID INCREASED
     Dosage: 100 MG/DAY
     Route: 048
     Dates: start: 20050930, end: 20060207
  3. IMURAN [Suspect]
     Indication: RENAL TRANSPLANT
     Dosage: 50 MG, QD
     Route: 048
     Dates: start: 20051224, end: 20060203
  4. FUROSEMIDE [Concomitant]
     Route: 065
  5. CYANOCOBALAMIN [Concomitant]
     Route: 065
  6. FLUNASE [Concomitant]
  7. SIMULECT [Concomitant]
     Indication: RENAL TRANSPLANT
     Dosage: UNK, UNK
     Route: 042
     Dates: start: 20050727
  8. PROGRAF [Concomitant]
     Indication: RENAL TRANSPLANT
     Dosage: UNK, UNK
     Route: 065
     Dates: start: 20050727, end: 20051201
  9. NEORAL [Suspect]
     Indication: RENAL TRANSPLANT
     Route: 048
     Dates: start: 20051201
  10. MEDROL [Concomitant]
     Indication: RENAL TRANSPLANT
     Dosage: UNK, UNK
     Route: 048
     Dates: start: 20050727

REACTIONS (9)
  - BONE MARROW FAILURE [None]
  - DRUG INTERACTION [None]
  - HAEMOGLOBIN DECREASED [None]
  - MALAISE [None]
  - NEUTROPHIL PERCENTAGE DECREASED [None]
  - PANCYTOPENIA [None]
  - PLATELET COUNT DECREASED [None]
  - RED BLOOD CELL COUNT DECREASED [None]
  - WHITE BLOOD CELL COUNT DECREASED [None]
